FAERS Safety Report 7499579-5 (Version None)
Quarter: 2011Q2

REPORT INFORMATION
  Report Type: 
  Country: None (occurrence: None)
  Receive Date: 20110516
  Receipt Date: 20110506
  Transmission Date: 20111010
  Serious: Yes (Hospitalization, Other)
  Sender: FDA-Public Use
  Company Number: 2011SP003677

PATIENT
  Age: 44 Year
  Sex: Female
  Weight: 96.1626 kg

DRUGS (1)
  1. NUVARING [Suspect]
     Indication: CONTRACEPTION
     Dates: start: 20090101, end: 20090201

REACTIONS (2)
  - PULMONARY EMBOLISM [None]
  - PNEUMONIA [None]
